FAERS Safety Report 25632652 (Version 1)
Quarter: 2025Q3

REPORT INFORMATION
  Report Type: Spontaneous
  Country: US (occurrence: US)
  Receive Date: 20250801
  Receipt Date: 20250801
  Transmission Date: 20251020
  Serious: No
  Sender: GRIFOLS
  Company Number: US-IGSA-BIG0030780

PATIENT
  Sex: Female

DRUGS (53)
  1. GAMUNEX-C [Suspect]
     Active Substance: HUMAN IMMUNOGLOBULIN G
     Indication: Asthma
     Dosage: 6 GRAM, Q.10D.
     Route: 058
     Dates: start: 201806
  2. GAMUNEX-C [Suspect]
     Active Substance: HUMAN IMMUNOGLOBULIN G
     Indication: Off label use
  3. RESTASIS [Concomitant]
     Active Substance: CYCLOSPORINE
  4. TYRVAYA [Concomitant]
     Active Substance: VARENICLINE TARTRATE
  5. MELOXICAM [Concomitant]
     Active Substance: MELOXICAM
  6. ROBAXIN [Concomitant]
     Active Substance: METHOCARBAMOL
  7. TYLENOL [Concomitant]
     Active Substance: ACETAMINOPHEN
  8. IPRATROPIUM [Concomitant]
     Active Substance: IPRATROPIUM
  9. DUPIXENT [Concomitant]
     Active Substance: DUPILUMAB
  10. PREDNISONE [Concomitant]
     Active Substance: PREDNISONE
  11. PLAQUENIL [Concomitant]
     Active Substance: HYDROXYCHLOROQUINE SULFATE
  12. AFRIN MOISTURIZING SALINE [Concomitant]
  13. NASACORT ALLERGY 24HR [Concomitant]
     Active Substance: TRIAMCINOLONE ACETONIDE
  14. LEVAQUIN [Concomitant]
     Active Substance: LEVOFLOXACIN
  15. TESSALON [Concomitant]
     Active Substance: BENZONATATE
  16. SPORANOX [Concomitant]
     Active Substance: ITRACONAZOLE
  17. ALBUTEROL SULFATE [Concomitant]
     Active Substance: ALBUTEROL SULFATE
  18. BUDESONIDE [Concomitant]
     Active Substance: BUDESONIDE
  19. CHOLECALCIFEROL [Concomitant]
     Active Substance: CHOLECALCIFEROL
  20. CYCLOSPORINE [Concomitant]
     Active Substance: CYCLOSPORINE
  21. ERYTHROMYCIN [Concomitant]
     Active Substance: ERYTHROMYCIN
  22. ALBUTEROL SULFATE\IPRATROPIUM BROMIDE [Concomitant]
     Active Substance: ALBUTEROL SULFATE\IPRATROPIUM BROMIDE
  23. LEVOTHYROXINE SODIUM [Concomitant]
     Active Substance: LEVOTHYROXINE SODIUM
  24. LOTEPREDNOL ETABONATE [Concomitant]
     Active Substance: LOTEPREDNOL ETABONATE
  25. VITAMINS NOS [Concomitant]
     Active Substance: VITAMINS
  26. XHANCE [Concomitant]
     Active Substance: FLUTICASONE PROPIONATE
  27. INDAPAMIDE [Concomitant]
     Active Substance: INDAPAMIDE
  28. STIOLTO RESPIMAT [Concomitant]
     Active Substance: OLODATEROL HYDROCHLORIDE\TIOTROPIUM BROMIDE MONOHYDRATE
  29. EUCALYPTUS OIL [Concomitant]
     Active Substance: EUCALYPTUS OIL
  30. MUPIROCIN [Concomitant]
     Active Substance: MUPIROCIN
  31. NABUMETONE [Concomitant]
     Active Substance: NABUMETONE
  32. TOPAMAX [Concomitant]
     Active Substance: TOPIRAMATE
  33. AZITHROMYCIN [Concomitant]
     Active Substance: AZITHROMYCIN
  34. LOTEMAX [Concomitant]
     Active Substance: LOTEPREDNOL ETABONATE
  35. XIIDRA [Concomitant]
     Active Substance: LIFITEGRAST
  36. STOOL SOFTENER (DOCUSATE) [Concomitant]
     Active Substance: DOCUSATE
  37. ASPIRIN [Concomitant]
     Active Substance: ASPIRIN
  38. LIOTHYRONINE [Concomitant]
     Active Substance: LIOTHYRONINE
  39. FAMOTIDINE [Concomitant]
     Active Substance: FAMOTIDINE
  40. FEXOFENADINE [Concomitant]
     Active Substance: FEXOFENADINE HYDROCHLORIDE
  41. LEVOCETIRIZINE [Concomitant]
     Active Substance: LEVOCETIRIZINE
  42. CLINDAMYCIN [Concomitant]
     Active Substance: CLINDAMYCIN
  43. BIFIDOBACTERIUM ANIMALIS LACTIS [Concomitant]
     Active Substance: BIFIDOBACTERIUM ANIMALIS LACTIS
  44. VANQUISH [ACETYLSALICYLIC ACID;CAFFEINE;PARACETAMOL] [Concomitant]
  45. CYTOMEL [Concomitant]
     Active Substance: LIOTHYRONINE SODIUM
  46. KETOROLAC [Concomitant]
     Active Substance: KETOROLAC TROMETHAMINE
  47. LEVOFLOXACIN [Concomitant]
     Active Substance: LEVOFLOXACIN
  48. PHENTERMINE [Concomitant]
     Active Substance: PHENTERMINE
  49. POTASSIUM CHLORIDE [Concomitant]
     Active Substance: POTASSIUM CHLORIDE
  50. PROMETHAZINE HYDROCHLORIDE [Concomitant]
     Active Substance: PROMETHAZINE HYDROCHLORIDE
  51. PROVENTIL HFA [Concomitant]
     Active Substance: ALBUTEROL SULFATE
  52. SYNTHROID [Concomitant]
     Active Substance: LEVOTHYROXINE SODIUM
  53. WELLBUTRIN SR [Concomitant]
     Active Substance: BUPROPION HYDROCHLORIDE

REACTIONS (4)
  - Infusion site reaction [Unknown]
  - Infusion site irritation [Unknown]
  - Infusion site urticaria [Unknown]
  - Rash [Unknown]
